FAERS Safety Report 9391502 (Version 2)
Quarter: 2013Q3

REPORT INFORMATION
  Report Type: Report from Study
  Country: US (occurrence: US)
  Receive Date: 20130709
  Receipt Date: 20130820
  Transmission Date: 20140515
  Serious: Yes (Hospitalization)
  Sender: FDA-Public Use
  Company Number: PHHO2010US16219

PATIENT
  Age: 60 Year
  Sex: Female
  Weight: 129 kg

DRUGS (3)
  1. TASIGNA [Suspect]
     Indication: CHRONIC MYELOID LEUKAEMIA
     Dosage: 400 MG, DAILY
     Route: 048
     Dates: start: 20080502
  2. ENALAPRIL W/HYDROCHLOROTHIAZIDE [Concomitant]
  3. OMEPRAZOLE [Concomitant]

REACTIONS (4)
  - Cholecystitis [Recovered/Resolved]
  - Gastrooesophageal reflux disease [Recovered/Resolved]
  - Barrett^s oesophagus [Recovered/Resolved]
  - Concomitant disease progression [Recovered/Resolved]
